FAERS Safety Report 8413806-9 (Version None)
Quarter: 2012Q2

REPORT INFORMATION
  Report Type: 
  Country: None (occurrence: None)
  Receive Date: 20120605
  Receipt Date: 20120531
  Transmission Date: 20120825
  Serious: Yes (Hospitalization, Disabling, Other)
  Sender: FDA-Public Use
  Company Number: US-MERCK-1110USA01310

PATIENT
  Age: 67 Year
  Sex: Female
  Weight: 65 kg

DRUGS (6)
  1. FOSAMAX [Suspect]
     Route: 048
     Dates: start: 20010101, end: 20080401
  2. HORMONES (UNSPECIFIED) [Concomitant]
     Route: 065
     Dates: start: 19900101, end: 20000101
  3. VITAMIN D (UNSPECIFIED) [Concomitant]
     Indication: OSTEOPOROSIS
     Route: 065
     Dates: start: 19960101
  4. VITAMINS (UNSPECIFIED) [Concomitant]
     Indication: OSTEOPOROSIS
     Route: 065
     Dates: start: 19960101
  5. FOSAMAX [Suspect]
     Indication: OSTEOPOROSIS
     Route: 048
     Dates: start: 19960101, end: 20010601
  6. CALCIUM (UNSPECIFIED) [Concomitant]
     Indication: OSTEOPOROSIS
     Route: 065
     Dates: start: 19960101

REACTIONS (23)
  - VENOUS LAKE [None]
  - SYNCOPE [None]
  - SPONDYLITIS [None]
  - ONYCHOMYCOSIS [None]
  - OSTEOPOROSIS [None]
  - ENDOMETRIAL DISORDER [None]
  - BASAL CELL CARCINOMA [None]
  - CAROTID ARTERY DISEASE [None]
  - INTERVERTEBRAL DISC PROTRUSION [None]
  - SWELLING [None]
  - COLONIC POLYP [None]
  - HYPOACUSIS [None]
  - OSTEOPENIA [None]
  - HYPERLIPIDAEMIA [None]
  - HAEMATURIA [None]
  - OSTEOARTHRITIS [None]
  - VITAMIN D DEFICIENCY [None]
  - NERVE COMPRESSION [None]
  - FEMUR FRACTURE [None]
  - LOW TURNOVER OSTEOPATHY [None]
  - STRESS FRACTURE [None]
  - NEUTROPENIA [None]
  - INTERVERTEBRAL DISC DEGENERATION [None]
